FAERS Safety Report 10173988 (Version 1)
Quarter: 2014Q2

REPORT INFORMATION
  Report Type: Spontaneous
  Country: FR (occurrence: FR)
  Receive Date: 20140515
  Receipt Date: 20140515
  Transmission Date: 20141212
  Serious: Yes (Hospitalization)
  Sender: FDA-Public Use
  Company Number: FR-BRISTOL-MYERS SQUIBB COMPANY-20721726

PATIENT
  Age: 63 Year
  Sex: Male

DRUGS (6)
  1. ONGLYZA TABS [Suspect]
     Route: 048
     Dates: start: 201312, end: 201403
  2. METFORMIN [Suspect]
     Route: 048
  3. DAIVOBET [Suspect]
     Route: 061
  4. DAIVONEX [Suspect]
     Route: 061
  5. DEXERYL [Suspect]
     Route: 061
  6. APSOR [Suspect]
     Route: 061

REACTIONS (1)
  - Dermatitis contact [Recovering/Resolving]
